FAERS Safety Report 6786856-6 (Version None)
Quarter: 2010Q2

REPORT INFORMATION
  Report Type: 
  Country: None (occurrence: None)
  Receive Date: 20100623
  Receipt Date: 20100617
  Transmission Date: 20101027
  Serious: No
  Sender: FDA-Public Use
  Company Number: US-ROXANE LABORATORIES, INC.-2010-RO-00734RO

PATIENT
  Sex: Female

DRUGS (9)
  1. LITHIUM CARBONATE [Suspect]
     Indication: BIPOLAR DISORDER
     Dosage: 900 MG
     Route: 048
     Dates: start: 19950101
  2. NEXIUM [Concomitant]
  3. RANITIDINE [Concomitant]
  4. KLONOPIN [Concomitant]
  5. ALLEGRA [Concomitant]
  6. IMITREX [Concomitant]
  7. INDERAL [Concomitant]
  8. PRIMIDONE [Concomitant]
  9. TRAZODONE HYDROCHLORIDE [Concomitant]

REACTIONS (1)
  - RECURRING SKIN BOILS [None]
